FAERS Safety Report 6174114-2 (Version None)
Quarter: 2009Q2

REPORT INFORMATION
  Report Type: 
  Country: None (occurrence: None)
  Receive Date: 20090429
  Receipt Date: 20090429
  Transmission Date: 20091009
  Serious: Yes (Hospitalization)
  Sender: FDA-Public Use
  Company Number: None

PATIENT
  Age: 20 Year
  Sex: Female

DRUGS (2)
  1. VENLAFAXINE HCL [Suspect]
     Indication: BIPOLAR DISORDER
     Dosage: OVERDOSE 1X PO
     Route: 048
  2. HALOPERIDOL 5MG/M1 [Suspect]
     Indication: AGITATION
     Dosage: 2 MG EVERY 6 HOURS IV BOLUS
     Route: 040

REACTIONS (3)
  - DRUG INTERACTION [None]
  - DYSTONIA [None]
  - OVERDOSE [None]
